FAERS Safety Report 7379844-2 (Version None)
Quarter: 2011Q1

REPORT INFORMATION
  Report Type: 
  Country: None (occurrence: None)
  Receive Date: 20110318
  Receipt Date: 20110304
  Transmission Date: 20110831
  Serious: Yes (Other)
  Sender: FDA-Public Use
  Company Number: 2011-088

PATIENT
  Age: 75 Year
  Sex: Male

DRUGS (6)
  1. LYRICA [Concomitant]
  2. MORPHINE SULFATE [Suspect]
     Indication: PRODUCT USED FOR UNKNOWN INDICATION
     Dosage: 0.17 MG/HR INTRATHECAL
     Route: 037
  3. XANAX [Concomitant]
  4. CHEMOTHERAPY [Concomitant]
  5. MORPHINE SULFATE [Concomitant]
  6. PRIALT [Suspect]
     Indication: NEURALGIA
     Dosage: 0.02 UG/HR INTRATHECAL
     Route: 037
     Dates: start: 20110211, end: 20110304

REACTIONS (1)
  - PLATELET COUNT DECREASED [None]
